FAERS Safety Report 10220017 (Version 1)
Quarter: 2014Q1

REPORT INFORMATION
  Report Type: Spontaneous
  Country: US (occurrence: None)
  Receive Date: 20140306
  Receipt Date: 20140306
  Transmission Date: 20141002
  Serious: Yes (Other)
  Sender: FDA-Public Use
  Company Number: 163-21880-13071163

PATIENT
  Age: 53 Year
  Sex: Male
  Weight: 56.25 kg

DRUGS (12)
  1. REVLIMID (LENALIDOMIDE) (CAPSULES) [Suspect]
     Indication: PLASMA CELL MYELOMA
     Dosage: 10 MG, 21 IN 28 D, PO
     Route: 048
     Dates: start: 201306
  2. VELCADE (BORTEZOMIB) [Suspect]
     Indication: NEUROPATHY PERIPHERAL
  3. AMLODIPINE BESYLATE (AMLODIPINE BESILATE) (TABLETS) [Concomitant]
  4. DEXAMETHASONE (DEXAMETHASONE) (TABLETS) [Concomitant]
  5. KETOROLAC (KETOROLAC) (TABLETS) [Concomitant]
  6. NAPROXEN (NAPROXEN) (TABLETS) [Concomitant]
  7. PROMETHAZINE (PROMETHAZINE) (TABLETS) [Concomitant]
  8. FOLIC ACID (FOLIC ACID) (TABLETS) [Concomitant]
  9. WARFARIN SODIUM (WARFARIN SODIUM) (TABLETS) [Concomitant]
  10. PRILOSEC (OMEPRAZOLE) (UNKNOWN) [Concomitant]
  11. HYDROCODON-ACTAMINOPHIN (VICODIN) (UNKNOWN) [Concomitant]
  12. OMEPRAZOLE DR (OMEPRAZOLE) (TABLETS) [Concomitant]

REACTIONS (4)
  - Memory impairment [None]
  - Nervousness [None]
  - Neuropathy peripheral [None]
  - Local swelling [None]
